FAERS Safety Report 5527190-1 (Version None)
Quarter: 2007Q4

REPORT INFORMATION
  Report Type: 
  Country: None (occurrence: None)
  Receive Date: 20071121
  Receipt Date: 20071113
  Transmission Date: 20080405
  Serious: Yes (Other)
  Sender: FDA-Public Use
  Company Number: US021728

PATIENT
  Age: 25 Year
  Sex: Female

DRUGS (1)
  1. PROVIGIL [Suspect]
     Dosage: 200 MG ONCE ORAL
     Route: 048
     Dates: start: 20040707, end: 20040707

REACTIONS (3)
  - INCORRECT DOSE ADMINISTERED [None]
  - REFUSAL OF TREATMENT BY PATIENT [None]
  - SUICIDE ATTEMPT [None]
